FAERS Safety Report 8050448 (Version 3)
Quarter: 2013Q3

REPORT INFORMATION
  Report Type: Report from Study
  Country: JP (occurrence: JP)
  Receive Date: 20110725
  Receipt Date: 20130906
  Transmission Date: 20140515
  Serious: Yes (Hospitalization, Other)
  Sender: FDA-Public Use
  Company Number: JP-BRISTOL-MYERS SQUIBB COMPANY-15647753

PATIENT
  Age: 29 Year
  Sex: Male
  Weight: 64.6 kg

DRUGS (5)
  1. ABILIFY TABS [Suspect]
     Indication: SCHIZOPHRENIA
     Dosage: 12MG:27JAN11-09FEB11.?10FEB11-23FEB11 14 DAYS.?24MG 05MAR11-MAR11 ?6 MG:20JAN11-26JAN11.7 DAYS
     Route: 048
     Dates: start: 20110120
  2. SENNAL [Concomitant]
     Dosage: TAB,
     Dates: end: 20110223
  3. ETIZOLAM [Concomitant]
     Dosage: UPTO 19JAN2011.ALSO 1 MG/DAY
  4. LENDORMIN [Concomitant]
     Dosage: TABS
     Dates: end: 20110119
  5. RISPERDAL [Concomitant]
     Dosage: TABS
     Dates: end: 20110126

REACTIONS (2)
  - Schizophrenia [Not Recovered/Not Resolved]
  - Suicide attempt [Recovered/Resolved]
